FAERS Safety Report 9034400 (Version 1)
Quarter: 2013Q1

REPORT INFORMATION
  Report Type: Spontaneous
  Country: US (occurrence: None)
  Receive Date: 20130116
  Receipt Date: 20130116
  Transmission Date: 20140127
  Serious: Yes (Other)
  Sender: FDA-Public Use
  Company Number: None

PATIENT
  Age: 42 Year
  Sex: Female
  Weight: 59.1 kg

DRUGS (2)
  1. JERGENS NATURAL GLOW [Suspect]
     Dosage: +.8 OZ  DAILY  TOPICAL APPLICATION TO BODY
     Route: 061
     Dates: start: 201205, end: 201207
  2. SKIN RENEW MIRACLE SKIN PERFECTOR BB CREAM SPF 15 GARNIER [Suspect]
     Dosage: +.1 OZ  DAILY  TOPICAL APPLICATION TO FACE
     Route: 061
     Dates: start: 201202, end: 201207

REACTIONS (3)
  - Lethargy [None]
  - Dizziness [None]
  - Thyroid disorder [None]
